FAERS Safety Report 9720627 (Version 1)
Quarter: 2013Q4

REPORT INFORMATION
  Report Type: Spontaneous
  Country: US (occurrence: US)
  Receive Date: 20131129
  Receipt Date: 20131129
  Transmission Date: 20140711
  Serious: Yes (Death, Other)
  Sender: FDA-Public Use
  Company Number: PHHY2013US136314

PATIENT
  Age: 61 Year
  Sex: Male
  Weight: 99.77 kg

DRUGS (32)
  1. BASILIXIMAB [Suspect]
     Indication: GRAFT VERSUS HOST DISEASE
     Dosage: 20 MG, UNK
     Route: 042
     Dates: start: 20130926
  2. BASILIXIMAB [Suspect]
     Dosage: 20 MG, UNK
     Route: 042
     Dates: start: 20131003
  3. BASILIXIMAB [Suspect]
     Dosage: 20 MG, UNK
     Route: 042
     Dates: start: 20131010
  4. BASILIXIMAB [Suspect]
     Dosage: 20 MG, UNK
     Route: 042
     Dates: start: 20131017
  5. INFLIXIMAB [Suspect]
     Indication: GRAFT VERSUS HOST DISEASE
     Dosage: 10 MG/KG, UNK
     Route: 042
     Dates: start: 20130926
  6. INFLIXIMAB [Suspect]
     Dosage: 10 MG/KG, UNK
     Route: 042
     Dates: start: 20131003
  7. INFLIXIMAB [Suspect]
     Dosage: 10 MG/KG, UNK
     Route: 042
     Dates: start: 20131010
  8. INFLIXIMAB [Suspect]
     Dosage: 10 MG/KG, UNK
     Route: 042
     Dates: start: 20131017
  9. FLUDARABINE [Concomitant]
     Dosage: UNK UKN, UNK
  10. BUSULFAN [Concomitant]
     Dosage: UNK UKN, UNK
  11. ANTITHYMOCYTE IMMUNOGLOBULIN [Concomitant]
     Dosage: UNK UKN, UNK
  12. PROGRAF [Concomitant]
     Dosage: 1.4 MG, QD
     Route: 042
     Dates: end: 201308
  13. PANTOPRAZOLE [Concomitant]
     Dosage: 40 MG, BID
     Route: 042
  14. METHYLPREDNISOLONE [Concomitant]
     Dosage: 16 MG, QD
     Route: 042
  15. METHYLPREDNISOLONE [Concomitant]
     Dosage: UNK UKN, UNK
  16. TIOTROPIUM [Concomitant]
     Dosage: 18 UG, QD
  17. ALBUTEROL [Concomitant]
     Dosage: 3 ML, TID (EVERY 08 HOURS)
  18. BUDESONIDE [Concomitant]
     Dosage: 9 MG, QD
     Route: 048
  19. PROTON PUMP INHIBITORS [Concomitant]
     Dosage: UNK UKN, UNK
  20. OCTREOTIDE [Concomitant]
     Dosage: UNK UKN, UNK
  21. IMMUNOGLOBULIN I.V [Concomitant]
     Dosage: 400 MG/KG, QD
  22. CYANOCOBALAMIN [Concomitant]
     Dosage: 1000 UG, QD FOR 07 DAYS
  23. LEVOFLOXACIN [Concomitant]
     Dosage: 750 MG, QD
     Route: 048
  24. CHOLESTYRAMINE LIGHT [Concomitant]
     Dosage: 4 G, BID
     Route: 048
  25. INSULIN GLARGINE [Concomitant]
     Dosage: 20 U, AT BEDTIME
  26. LOMOTIL//LOPERAMIDE HYDROCHLORIDE [Concomitant]
     Dosage: 2-4 MG, QID
     Route: 048
  27. THIAMINE [Concomitant]
     Dosage: UNK UKN, QD
     Route: 042
  28. FOLATE [Concomitant]
     Dosage: UNK UKN, QD
     Route: 042
  29. ASCORBIC ACID [Concomitant]
     Dosage: UNK UKN, QD
     Route: 042
  30. MIRTAZAPIN [Concomitant]
     Dosage: 25 MG, QD AT BED TIME
     Route: 048
  31. INSULIN LISPRO [Concomitant]
     Dosage: 04 TIMES A DAY WITH MEALS AND AT BEDTIME
  32. GABAPENTIN [Concomitant]
     Dosage: 600 MG, TID
     Route: 048

REACTIONS (24)
  - Death [Fatal]
  - Neurodegenerative disorder [Unknown]
  - Demyelination [Unknown]
  - Inflammation [Unknown]
  - Unresponsive to stimuli [Unknown]
  - Peripheral motor neuropathy [Unknown]
  - Haematochezia [Unknown]
  - Myocardial infarction [Unknown]
  - Pulse absent [Unknown]
  - Pupil fixed [Unknown]
  - Blood bilirubin increased [Unknown]
  - Acidosis [Unknown]
  - Platelet count decreased [Unknown]
  - Rhinovirus infection [Unknown]
  - Hypotension [Unknown]
  - BK virus infection [Unknown]
  - Cytomegalovirus infection [Unknown]
  - Bacteraemia [Unknown]
  - Graft versus host disease [Recovered/Resolved]
  - Haemoglobin decreased [Unknown]
  - Myopathy [Unknown]
  - Neutropenia [Unknown]
  - Epistaxis [Unknown]
  - Fluid retention [Unknown]
